FAERS Safety Report 25525379 (Version 1)
Quarter: 2025Q3

REPORT INFORMATION
  Report Type: Spontaneous
  Country: US (occurrence: US)
  Receive Date: 20250707
  Receipt Date: 20250707
  Transmission Date: 20251021
  Serious: Yes (Hospitalization, Other)
  Sender: ZYDUS PHARM
  Company Number: US-CADILA HEALTHCARE LIMITED-US-ZYDUS-125495

PATIENT

DRUGS (31)
  1. DOXORUBICIN [Suspect]
     Active Substance: DOXORUBICIN
     Indication: Diffuse large B-cell lymphoma stage III
     Route: 037
  2. DOXORUBICIN [Suspect]
     Active Substance: DOXORUBICIN
     Route: 037
  3. DOXORUBICIN [Suspect]
     Active Substance: DOXORUBICIN
     Route: 037
  4. METHOTREXATE [Suspect]
     Active Substance: METHOTREXATE
     Indication: Diffuse large B-cell lymphoma stage III
     Route: 037
  5. METHOTREXATE [Suspect]
     Active Substance: METHOTREXATE
     Route: 037
  6. METHOTREXATE [Suspect]
     Active Substance: METHOTREXATE
     Route: 037
  7. METHOTREXATE [Suspect]
     Active Substance: METHOTREXATE
     Route: 037
  8. CYCLOPHOSPHAMIDE [Suspect]
     Active Substance: CYCLOPHOSPHAMIDE
     Indication: Diffuse large B-cell lymphoma stage III
     Route: 037
  9. CYCLOPHOSPHAMIDE [Suspect]
     Active Substance: CYCLOPHOSPHAMIDE
     Route: 037
  10. CYCLOPHOSPHAMIDE [Suspect]
     Active Substance: CYCLOPHOSPHAMIDE
     Route: 037
  11. CYCLOPHOSPHAMIDE [Suspect]
     Active Substance: CYCLOPHOSPHAMIDE
     Route: 037
  12. CYTARABINE [Suspect]
     Active Substance: CYTARABINE
     Indication: Diffuse large B-cell lymphoma stage III
     Route: 037
  13. CYTARABINE [Suspect]
     Active Substance: CYTARABINE
     Route: 037
  14. CYTARABINE [Suspect]
     Active Substance: CYTARABINE
     Route: 037
  15. CYTARABINE [Suspect]
     Active Substance: CYTARABINE
     Route: 037
  16. ETOPOSIDE [Suspect]
     Active Substance: ETOPOSIDE
     Indication: Diffuse large B-cell lymphoma stage III
     Route: 037
  17. ETOPOSIDE [Suspect]
     Active Substance: ETOPOSIDE
     Route: 037
  18. ETOPOSIDE [Suspect]
     Active Substance: ETOPOSIDE
     Route: 037
  19. PREDNISONE [Suspect]
     Active Substance: PREDNISONE
     Indication: Diffuse large B-cell lymphoma stage III
     Route: 037
  20. PREDNISONE [Suspect]
     Active Substance: PREDNISONE
     Route: 037
  21. PREDNISONE [Suspect]
     Active Substance: PREDNISONE
     Route: 037
  22. PREDNISONE [Suspect]
     Active Substance: PREDNISONE
     Route: 037
  23. RITUXIMAB [Suspect]
     Active Substance: RITUXIMAB
     Indication: Diffuse large B-cell lymphoma stage III
     Route: 037
  24. RITUXIMAB [Suspect]
     Active Substance: RITUXIMAB
     Route: 037
  25. RITUXIMAB [Suspect]
     Active Substance: RITUXIMAB
     Route: 037
  26. RITUXIMAB [Suspect]
     Active Substance: RITUXIMAB
     Route: 037
  27. RITUXIMAB [Suspect]
     Active Substance: RITUXIMAB
     Route: 037
  28. VINCRISTINE [Suspect]
     Active Substance: VINCRISTINE
     Indication: Diffuse large B-cell lymphoma stage III
     Route: 037
  29. VINCRISTINE [Suspect]
     Active Substance: VINCRISTINE
     Route: 037
  30. VINCRISTINE [Suspect]
     Active Substance: VINCRISTINE
     Route: 037
  31. VINCRISTINE [Suspect]
     Active Substance: VINCRISTINE
     Route: 037

REACTIONS (1)
  - Small intestinal obstruction [Unknown]
